FAERS Safety Report 4972183-6 (Version None)
Quarter: 2006Q2

REPORT INFORMATION
  Report Type: 
  Country: None (occurrence: None)
  Receive Date: 20060413
  Receipt Date: 20060406
  Transmission Date: 20061013
  Serious: Yes (Disabling)
  Sender: FDA-Public Use
  Company Number: US-GLAXOSMITHKLINE-A0601459A

PATIENT
  Sex: Female

DRUGS (1)
  1. WELLBUTRIN [Suspect]
     Indication: DRUG USE FOR UNKNOWN INDICATION
     Dosage: 75MG PER DAY
     Route: 048

REACTIONS (6)
  - CONVULSION [None]
  - FALL [None]
  - HEAD INJURY [None]
  - PARALYSIS [None]
  - POST PROCEDURAL COMPLICATION [None]
  - SUBDURAL HAEMORRHAGE [None]
